FAERS Safety Report 8974393 (Version 3)
Quarter: 2012Q4

REPORT INFORMATION
  Report Type: 
  Country: US (occurrence: US)
  Receive Date: 20121219
  Receipt Date: 20121227
  Transmission Date: 20130627
  Serious: No
  Sender: FDA-Public Use
  Company Number: US-009507513-1212USA006378

PATIENT
  Age: 46 None
  Sex: Female
  Weight: 30.39 kg

DRUGS (12)
  1. VICTRELIS [Suspect]
     Indication: HEPATITIS C
     Dosage: 800 mg, tid
     Route: 048
     Dates: end: 201212
  2. RIBAVIRIN [Suspect]
     Indication: HEPATITIS C
     Dosage: UNK
     Dates: end: 201212
  3. PEGASYS [Suspect]
     Indication: HEPATITIS C
     Dosage: 180 Microgram, qw
     Route: 058
     Dates: end: 201212
  4. OXYCONTIN [Concomitant]
  5. CALCIUM (UNSPECIFIED) [Concomitant]
  6. PRAVASTATIN SODIUM [Concomitant]
  7. LEVOTHYROXINE SODIUM [Concomitant]
  8. GABAPENTIN [Concomitant]
  9. EXCEDRIN (ACETAMINOPHEN (+) CAFFEINE) [Concomitant]
  10. MOTRIN IB [Concomitant]
  11. STRATTERA [Concomitant]
  12. OXYCODONE [Concomitant]

REACTIONS (7)
  - Panic attack [Unknown]
  - Anxiety [Not Recovered/Not Resolved]
  - Irritability [Unknown]
  - Depression [Not Recovered/Not Resolved]
  - Crying [Not Recovered/Not Resolved]
  - Micturition urgency [Unknown]
  - Suicidal ideation [Recovered/Resolved]
